FAERS Safety Report 15148016 (Version 1)
Quarter: 2018Q3

REPORT INFORMATION
  Report Type: Spontaneous
  Country: DE (occurrence: DE)
  Receive Date: 20180716
  Receipt Date: 20180716
  Transmission Date: 20181010
  Serious: Yes (Hospitalization, Other)
  Sender: FDA-Public Use
  Company Number: PHHY2018DE045554

PATIENT
  Sex: Female

DRUGS (2)
  1. CANDESARTAN CILEXETIL. [Suspect]
     Active Substance: CANDESARTAN CILEXETIL
     Indication: HYPERTENSION
     Dosage: 4 MG, QD
     Route: 065
  2. CONCOR COR [Interacting]
     Active Substance: BISOPROLOL FUMARATE
     Indication: TACHYCARDIA PAROXYSMAL
     Dosage: 5 MG, QD
     Route: 065

REACTIONS (8)
  - Dizziness [Unknown]
  - Blood pressure abnormal [Recovering/Resolving]
  - Fracture [Unknown]
  - Off label use [Unknown]
  - Fall [Unknown]
  - Malaise [Unknown]
  - Drug interaction [Unknown]
  - Influenza [Unknown]
